FAERS Safety Report 6292609-8 (Version None)
Quarter: 2009Q3

REPORT INFORMATION
  Report Type: 
  Country: None (occurrence: None)
  Receive Date: 20090731
  Receipt Date: 20090723
  Transmission Date: 20100115
  Serious: No
  Sender: FDA-Public Use
  Company Number: JP-ASTRAZENECA-2009SE03398

PATIENT
  Age: 60 Year
  Sex: Male
  Weight: 56 kg

DRUGS (2)
  1. ARIMIDEX [Suspect]
     Indication: BREAST CANCER MALE
     Route: 048
     Dates: start: 20070124, end: 20070903
  2. ASPIRIN [Concomitant]
     Indication: ACTIVATED PARTIAL THROMBOPLASTIN TIME SHORTENED
     Route: 048
     Dates: start: 20071217, end: 20080117

REACTIONS (3)
  - ARTHRALGIA [None]
  - MUSCULOSKELETAL STIFFNESS [None]
  - PAIN IN EXTREMITY [None]
